FAERS Safety Report 6192363-4 (Version None)
Quarter: 2009Q2

REPORT INFORMATION
  Report Type: 
  Country: None (occurrence: None)
  Receive Date: 20090513
  Receipt Date: 20090511
  Transmission Date: 20091009
  Serious: Yes (Death)
  Sender: FDA-Public Use
  Company Number: 20096507

PATIENT
  Age: 58 Year
  Sex: Female

DRUGS (1)
  1. LIORESAL [Suspect]
     Indication: MUSCLE SPASTICITY
     Dosage: 262.9 MCG, DAILY, INTRATHECAL
     Route: 037

REACTIONS (2)
  - MULTIPLE SCLEROSIS [None]
  - PNEUMONIA [None]
